FAERS Safety Report 24012947 (Version 1)
Quarter: 2024Q2

REPORT INFORMATION
  Report Type: Spontaneous
  Country: CA (occurrence: CA)
  Receive Date: 20240626
  Receipt Date: 20240626
  Transmission Date: 20240715
  Serious: Yes (Life-Threatening, Hospitalization, Other)
  Sender: FDA-Public Use
  Company Number: CA-HIKMA PHARMACEUTICALS-CA-H14001-24-05572

PATIENT
  Age: 34 Year
  Sex: Male

DRUGS (5)
  1. CISPLATIN [Suspect]
     Active Substance: CISPLATIN
     Indication: Haematological malignancy
     Dosage: 159 MILLIGRAM, SINGLE, DAY 1
     Route: 042
     Dates: start: 20230926, end: 20230926
  2. DEXAMETHASONE [Suspect]
     Active Substance: DEXAMETHASONE
     Indication: Haematological malignancy
     Dosage: 20 MILLIGRAM, DAYS 1-4
     Route: 048
     Dates: start: 20230926, end: 20230926
  3. GEMCITABINE HYDROCHLORIDE [Suspect]
     Active Substance: GEMCITABINE HYDROCHLORIDE
     Indication: Haematological malignancy
     Dosage: 2120 MILLIGRAM, DAY 1, AY 8
     Route: 042
     Dates: start: 20230926, end: 20230926
  4. LANSOPRAZOLE [Concomitant]
     Active Substance: LANSOPRAZOLE
     Indication: Product used for unknown indication
     Dosage: UNK
     Route: 065
     Dates: start: 20220331
  5. RIZATRIPTAN [Concomitant]
     Active Substance: RIZATRIPTAN
     Indication: Product used for unknown indication
     Dosage: UNK
     Route: 065
     Dates: start: 20150101

REACTIONS (4)
  - Cerebrovascular accident [Recovering/Resolving]
  - Confusional state [Unknown]
  - Aphasia [Unknown]
  - Muscular weakness [Unknown]

NARRATIVE: CASE EVENT DATE: 20231002
